FAERS Safety Report 8552048-3 (Version None)
Quarter: 2012Q3

REPORT INFORMATION
  Report Type: 
  Country: None (occurrence: None)
  Receive Date: 20120731
  Receipt Date: 20120721
  Transmission Date: 20120928
  Serious: Yes (Hospitalization, Other)
  Sender: FDA-Public Use
  Company Number: ME-PAR PHARMACEUTICAL, INC-2012SCPR004519

PATIENT

DRUGS (1)
  1. DISULFIRAM [Suspect]
     Indication: ALCOHOLISM
     Dosage: 250 MG, / DAY
     Route: 065

REACTIONS (1)
  - ACUTE POLYNEUROPATHY [None]
